FAERS Safety Report 9010385 (Version 3)
Quarter: 2013Q1

REPORT INFORMATION
  Report Type: Report from Study
  Country: US (occurrence: US)
  Receive Date: 20130109
  Receipt Date: 20130129
  Transmission Date: 20140127
  Serious: Yes (Hospitalization)
  Sender: FDA-Public Use
  Company Number: US-ACTELION-A-US2013-77133

PATIENT
  Age: 56 Year
  Sex: Female

DRUGS (3)
  1. TRACLEER [Suspect]
     Indication: PULMONARY ARTERIAL HYPERTENSION
     Dosage: UNK
     Route: 048
  2. ADCIRCA [Concomitant]
  3. COUMADIN [Concomitant]

REACTIONS (6)
  - Cholelithiasis [Unknown]
  - Pancreatitis [Unknown]
  - Biopsy kidney [Unknown]
  - Post procedural haemorrhage [Unknown]
  - Haemorrhage [Unknown]
  - Transfusion [Unknown]
